FAERS Safety Report 9135047 (Version 4)
Quarter: 2013Q2

REPORT INFORMATION
  Report Type: Spontaneous
  Country: JP (occurrence: JP)
  Receive Date: 20130304
  Receipt Date: 20130501
  Transmission Date: 20140414
  Serious: Yes (Other)
  Sender: FDA-Public Use
  Company Number: JP-PFIZER INC-2013061454

PATIENT
  Age: 58 Year
  Sex: Female

DRUGS (2)
  1. LIPITOR [Suspect]
     Indication: HYPERCHOLESTEROLAEMIA
     Dosage: 5 MG, 1X/DAY
     Route: 048
     Dates: start: 201207, end: 201301
  2. ZETIA [Suspect]
     Dosage: 10 MG, 1X/DAY
     Route: 048
     Dates: start: 201207, end: 201301

REACTIONS (1)
  - Liver disorder [Recovering/Resolving]
